FAERS Safety Report 8232672-8 (Version None)
Quarter: 2012Q1

REPORT INFORMATION
  Report Type: 
  Country: None (occurrence: None)
  Receive Date: 20120323
  Receipt Date: 20120308
  Transmission Date: 20120608
  Serious: Yes (Other)
  Sender: FDA-Public Use
  Company Number: PHHY2012US023990

PATIENT
  Age: 52 Year
  Sex: Male

DRUGS (6)
  1. ANTI-THYMOCYTE GLOBULIN RABBIT NOS [Concomitant]
     Dosage: 5 DOSES, FIRST TEN DAYS AFTER KIDNEY TRANSPLANTATION
  2. CYCLOSPORINE [Suspect]
     Indication: RENAL TRANSPLANT
  3. IRRADIATION [Concomitant]
     Dosage: 800 CGY, FIRST TEN DAYS AFTER KIDNEY TRANSPLANTATION
  4. METHYLPREDNISOLONE [Concomitant]
     Indication: PREMEDICATION
  5. PREDNISONE TAB [Concomitant]
  6. MYCOPHENOLATE MOFETIL [Concomitant]
     Indication: RENAL TRANSPLANT
     Dosage: 2 G, UNK

REACTIONS (2)
  - WHITE BLOOD CELL COUNT DECREASED [None]
  - URETERIC STENOSIS [None]
